FAERS Safety Report 17236207 (Version 1)
Quarter: 2020Q1

REPORT INFORMATION
  Report Type: Spontaneous
  Country: FR (occurrence: FR)
  Receive Date: 20200106
  Receipt Date: 20200106
  Transmission Date: 20200409
  Serious: Yes (Hospitalization)
  Sender: FDA-Public Use
  Company Number: FR-MYLANLABS-2020M1000025

PATIENT
  Age: 55 Year
  Sex: Male

DRUGS (5)
  1. MILRINONE [Suspect]
     Active Substance: MILRINONE
     Indication: CEREBRAL VASOCONSTRICTION
     Dosage: 2 MICROGRAM/KILOGRAM, QMINUTE
     Route: 042
  2. MAGNESIUM SULFATE. [Suspect]
     Active Substance: MAGNESIUM SULFATE
     Indication: CEREBRAL VASOCONSTRICTION
     Route: 042
  3. NOREPINEPHRINE. [Suspect]
     Active Substance: NOREPINEPHRINE
     Indication: CEREBRAL VASOCONSTRICTION
     Dosage: UNK
     Route: 042
  4. MILRINONE [Suspect]
     Active Substance: MILRINONE
     Dosage: 4 MILLIGRAM
     Route: 013
  5. NIMODIPINE. [Suspect]
     Active Substance: NIMODIPINE
     Indication: CEREBRAL VASOCONSTRICTION
     Dosage: 3 MILLIGRAM
     Route: 013

REACTIONS (2)
  - Treatment failure [Unknown]
  - Cardiomyopathy [Recovered/Resolved]
